FAERS Safety Report 16397653 (Version 1)
Quarter: 2019Q2

REPORT INFORMATION
  Report Type: Report from Study
  Country: KR (occurrence: KR)
  Receive Date: 20190606
  Receipt Date: 20190606
  Transmission Date: 20190711
  Serious: Yes (Hospitalization, Other)
  Sender: FDA-Public Use
  Company Number: KR-GLAXOSMITHKLINE-KR2019GSK100634

PATIENT
  Age: 67 Year
  Sex: Male
  Weight: 53 kg

DRUGS (10)
  1. EBASTEL [Concomitant]
     Active Substance: EBASTINE
     Indication: CHRONIC OBSTRUCTIVE PULMONARY DISEASE
     Dosage: 10 MG, 1/DAY
     Route: 048
     Dates: start: 20140422
  2. DIGOXIN. [Concomitant]
     Active Substance: DIGOXIN
     Indication: ATRIAL FLUTTER
     Dosage: 0.125 MG, 1/DAY
     Route: 048
     Dates: start: 20150314, end: 20190108
  3. PACKED RED BLOOD CELLS [Concomitant]
     Active Substance: HUMAN RED BLOOD CELL
     Indication: ANAEMIA
     Dosage: 250 ML, BID
     Route: 042
     Dates: start: 20190213, end: 20190213
  4. UMECLIDINIUM BR+VILANTEROL TRIFENATATE [Suspect]
     Active Substance: UMECLIDINIUM BROMIDE\VILANTEROL TRIFENATATE
     Indication: CHRONIC OBSTRUCTIVE PULMONARY DISEASE
     Dosage: 1 PUFF(S), QD(62.5/25 MCG)
     Route: 055
     Dates: start: 20181017
  5. AXIMAR [Concomitant]
     Indication: CHRONIC OBSTRUCTIVE PULMONARY DISEASE
     Dosage: 400 MG, 1/DAY
     Route: 048
     Dates: start: 20070828
  6. CORDARONE [Concomitant]
     Active Substance: AMIODARONE HYDROCHLORIDE
     Indication: ATRIAL FIBRILLATION
     Dosage: 100 MG, 1/DAY
     Route: 048
     Dates: start: 20180718
  7. COZAAR [Concomitant]
     Active Substance: LOSARTAN POTASSIUM
     Indication: HYPERTENSION
     Dosage: 25 MG, 1/DAY
     Route: 048
     Dates: start: 20150321
  8. HERBEN SR [Concomitant]
     Indication: CARDIAC FAILURE
     Dosage: 90 MG, UNK
     Route: 048
     Dates: start: 20150314
  9. STOGAR [Concomitant]
     Active Substance: LAFUTIDINE
     Indication: PAIN PROPHYLAXIS
     Dosage: 10 MG, BID
     Route: 048
     Dates: start: 20170926
  10. ELIQUIS [Concomitant]
     Active Substance: APIXABAN
     Indication: CARDIOMYOPATHY
     Dosage: 2.5 MG, BID
     Dates: start: 20170926, end: 20190212

REACTIONS (2)
  - Stress cardiomyopathy [Recovered/Resolved]
  - Condition aggravated [Recovered/Resolved]

NARRATIVE: CASE EVENT DATE: 20190213
